FAERS Safety Report 20898554 (Version 2)
Quarter: 2025Q4

REPORT INFORMATION
  Report Type: Other
  Country: EU (occurrence: EU)
  Receive Date: 20220601
  Receipt Date: 20251028
  Transmission Date: 20260117
  Serious: Yes (Hospitalization, Other)
  Sender: MACLEODS
  Company Number: None

PATIENT

DRUGS (6)
  1. LEVOFLOXACIN [Suspect]
     Active Substance: LEVOFLOXACIN
     Indication: Escherichia infection
     Route: 065
     Dates: start: 2021
  2. LEVOFLOXACIN [Suspect]
     Active Substance: LEVOFLOXACIN
     Indication: Antibiotic therapy
  3. CEFTRIAXONE [Suspect]
     Active Substance: CEFTRIAXONE
     Indication: Product used for unknown indication
     Dosage: 1 GRAM, 1G/3.5 ML (PARENTERAL)
     Route: 065
     Dates: start: 2021
  4. CEFDITOREN [Suspect]
     Active Substance: CEFDITOREN
     Indication: Antibiotic therapy
     Dosage: 400 MILLIGRAM
     Route: 065
     Dates: start: 2021
  5. KETOROLAC [Suspect]
     Active Substance: KETOROLAC TROMETHAMINE
     Indication: Product used for unknown indication
     Dosage: UNK, 30 MG/ML (PARENTERAL)
     Route: 065
     Dates: start: 2021
  6. Amlodipine/ Ramipril [Concomitant]
     Indication: Product used for unknown indication
     Route: 065

REACTIONS (9)
  - Escherichia infection [Unknown]
  - Hyperpyrexia [Unknown]
  - Cystocele [Unknown]
  - Hydronephrosis [Unknown]
  - Vulvovaginal discomfort [Unknown]
  - Pyelonephritis [Unknown]
  - Back pain [Unknown]
  - Polymerase chain reaction positive [Unknown]
  - Drug ineffective [Unknown]

NARRATIVE: CASE EVENT DATE: 20210926
